FAERS Safety Report 8495864 (Version 3)
Quarter: 2014Q2

REPORT INFORMATION
  Report Type: Spontaneous
  Country: JP (occurrence: JP)
  Receive Date: 20120405
  Receipt Date: 20131028
  Transmission Date: 20141212
  Serious: Yes (Other)
  Sender: FDA-Public Use
  Company Number: JP-PFIZER INC-2012078805

PATIENT
  Age: 69 Year
  Sex: Female

DRUGS (5)
  1. METHOTREXATE SODIUM [Suspect]
     Indication: RHEUMATOID ARTHRITIS
     Dosage: UNK
     Route: 048
     Dates: start: 201001
  2. METHYLPREDNISOLONE [Suspect]
     Dosage: UNK
     Dates: start: 201001
  3. TACROLIMUS [Suspect]
     Indication: RHEUMATOID ARTHRITIS
     Dosage: UNK
     Dates: start: 201001
  4. BUCILLAMINE [Suspect]
     Indication: RHEUMATOID ARTHRITIS
     Dosage: UNK
     Dates: start: 201001
  5. ABATACEPT [Concomitant]
     Indication: RHEUMATOID ARTHRITIS
     Dosage: UNK
     Dates: start: 201105

REACTIONS (1)
  - Pneumocystis jirovecii pneumonia [Recovered/Resolved]
